FAERS Safety Report 25471187 (Version 1)
Quarter: 2025Q2

REPORT INFORMATION
  Report Type: Spontaneous
  Country: US (occurrence: US)
  Receive Date: 20250624
  Receipt Date: 20250624
  Transmission Date: 20250717
  Serious: No
  Sender: AUROBINDO
  Company Number: US-AUROBINDO-AUR-APL-2024-057406

PATIENT
  Age: 71 Year
  Sex: Male
  Weight: 99.79 kg

DRUGS (1)
  1. ZOLPIDEM TARTRATE [Suspect]
     Active Substance: ZOLPIDEM TARTRATE
     Indication: Insomnia
     Route: 065
     Dates: start: 20240811

REACTIONS (4)
  - Drug ineffective [Unknown]
  - Product physical issue [Unknown]
  - Product substitution issue [Unknown]
  - Product colour issue [Unknown]
